FAERS Safety Report 19488695 (Version 2)
Quarter: 2021Q3

REPORT INFORMATION
  Report Type: Report from Study
  Country: CA (occurrence: CA)
  Receive Date: 20210702
  Receipt Date: 20210708
  Transmission Date: 20211014
  Serious: Yes (Death, Hospitalization)
  Sender: FDA-Public Use
  Company Number: CA-CHIESI-2020CHF03292

PATIENT
  Age: 64 Year
  Sex: Female
  Weight: 71 kg

DRUGS (3)
  1. DEFERIPRONE [Suspect]
     Active Substance: DEFERIPRONE
     Indication: IRON OVERLOAD
     Dosage: UNK UNK, TID
     Route: 048
     Dates: start: 20200127
  2. DEFERIPRONE [Suspect]
     Active Substance: DEFERIPRONE
     Indication: THALASSAEMIA
     Dosage: 23 MILLIGRAM/KILOGRAM, TID
     Route: 048
     Dates: start: 20200128
  3. DEFERIPRONE [Suspect]
     Active Substance: DEFERIPRONE
     Indication: TRANSFUSION

REACTIONS (2)
  - Hospitalisation [Unknown]
  - Death [Fatal]

NARRATIVE: CASE EVENT DATE: 20200714
